FAERS Safety Report 4322358-4 (Version None)
Quarter: 2004Q1

REPORT INFORMATION
  Report Type: 
  Country: None (occurrence: None)
  Receive Date: 20040322
  Receipt Date: 20040322
  Transmission Date: 20041129
  Serious: Yes (Other)
  Sender: FDA-Public Use
  Company Number: None

PATIENT
  Age: 34 Year
  Sex: Female

DRUGS (2)
  1. DECADRON [Suspect]
     Indication: METASTASES TO CENTRAL NERVOUS SYSTEM
     Dosage: 10 MG QID PO
     Route: 048
     Dates: start: 20020704
  2. DEXMETHYLPHENIDATE [Suspect]
     Dosage: 5 MG THREE BID PO
     Route: 048
     Dates: start: 20020715

REACTIONS (7)
  - ASTHENIA [None]
  - BLOOD GLUCOSE INCREASED [None]
  - DIARRHOEA [None]
  - HYPERPHAGIA [None]
  - POLYDIPSIA [None]
  - POLYURIA [None]
  - VISION BLURRED [None]
